FAERS Safety Report 23203393 (Version 1)
Quarter: 2023Q4

REPORT INFORMATION
  Report Type: Spontaneous
  Country: US (occurrence: None)
  Receive Date: 20231120
  Receipt Date: 20231120
  Transmission Date: 20240110
  Serious: Yes (Death)
  Sender: FDA-Public Use
  Company Number: None

PATIENT
  Age: 61 Year
  Sex: Male

DRUGS (6)
  1. REPATHA [Suspect]
     Active Substance: EVOLOCUMAB
     Indication: Hyperlipidaemia
     Dosage: 140 MG Q 2 WKS UNDER THE SKIN
     Route: 042
     Dates: start: 20210714
  2. CARVEDILOL [Concomitant]
     Active Substance: CARVEDILOL
  3. AMIODARONE [Concomitant]
  4. VITAMIN B-COMPLEX TABLETS [Concomitant]
  5. VITAMIN D3 1000 TABLETS [Concomitant]
  6. VITAMIN C [Concomitant]
     Active Substance: ASCORBIC ACID

REACTIONS (1)
  - Death [None]
